FAERS Safety Report 9321084 (Version 1)
Quarter: 2013Q2

REPORT INFORMATION
  Report Type: Spontaneous
  Country: BR (occurrence: BR)
  Receive Date: 20130531
  Receipt Date: 20130531
  Transmission Date: 20140414
  Serious: Yes (Disabling)
  Sender: FDA-Public Use
  Company Number: BR-ELI_LILLY_AND_COMPANY-BR201305006430

PATIENT
  Age: 22 Year
  Sex: 0

DRUGS (8)
  1. ZYPREXA [Suspect]
     Dosage: 5 MG, EACH EVENING
     Route: 065
     Dates: start: 20110817
  2. ZYPREXA [Suspect]
     Dosage: 10 MG, QD
     Route: 065
     Dates: start: 20110916
  3. ZYPREXA [Suspect]
     Dosage: 15 MG, QD
     Route: 065
     Dates: start: 20111003
  4. VALPROATE SODIUM [Concomitant]
     Dosage: 500 MG, QD
     Route: 065
  5. VALPROATE SODIUM [Concomitant]
     Dosage: 1000 MG, QD
     Route: 065
     Dates: start: 20110817
  6. VALPROATE SODIUM [Concomitant]
     Dosage: 500 MG, BID
     Route: 065
     Dates: start: 20120418
  7. CLONAZEPAM [Concomitant]
     Dosage: 2 MG, QD
     Route: 065
  8. CLONAZEPAM [Concomitant]
     Dosage: 4 MG, QD
     Route: 065
     Dates: start: 20110817

REACTIONS (14)
  - Mental status changes [Recovered/Resolved]
  - Irritability [Recovered/Resolved]
  - Excessive masturbation [Recovered/Resolved]
  - Insomnia [Recovered/Resolved]
  - Crying [Recovered/Resolved]
  - Restlessness [Recovered/Resolved]
  - Apathy [Recovered/Resolved]
  - Sleep phase rhythm disturbance [Recovered/Resolved]
  - Extrapyramidal disorder [Recovered/Resolved]
  - Impaired reasoning [Recovered/Resolved]
  - Disturbance in attention [Recovered/Resolved]
  - Anxiety [Recovered/Resolved]
  - Masked facies [Recovered/Resolved]
  - Somnolence [Recovered/Resolved]
